FAERS Safety Report 8075850-3 (Version None)
Quarter: 2012Q1

REPORT INFORMATION
  Report Type: 
  Country: None (occurrence: None)
  Receive Date: 20120127
  Receipt Date: 20120123
  Transmission Date: 20120608
  Serious: No
  Sender: FDA-Public Use
  Company Number: US-PFIZER INC-2011304867

PATIENT
  Sex: Male
  Weight: 68 kg

DRUGS (3)
  1. ZOLOFT [Concomitant]
     Dosage: UNK
  2. ARTHROTEC [Suspect]
     Indication: BACK PAIN
     Dosage: UNK, 1X/DAY
     Route: 048
     Dates: start: 20110501, end: 20111209
  3. PROPECIA [Concomitant]
     Dosage: UNK

REACTIONS (3)
  - URTICARIA [None]
  - RASH [None]
  - LIP SWELLING [None]
